FAERS Safety Report 4806159-6 (Version None)
Quarter: 2005Q4

REPORT INFORMATION
  Report Type: 
  Country: None (occurrence: None)
  Receive Date: 20051021
  Receipt Date: 20051010
  Transmission Date: 20060501
  Serious: Yes (Hospitalization)
  Sender: FDA-Public Use
  Company Number: GB-BRISTOL-MYERS SQUIBB COMPANY-13138763

PATIENT
  Sex: Male
  Weight: 100 kg

DRUGS (6)
  1. ABILIFY [Suspect]
     Indication: SCHIZOPHRENIA
     Dosage: DOSAGE: INCREASED TO 30 MG DAILY.  INCREASED TO 45 MG DAILY DURING HOSPITALIZATION.
     Route: 048
  2. CLOZARIL [Concomitant]
  3. GEODON [Concomitant]
  4. TRILEPTAL [Concomitant]
  5. SEROQUEL [Concomitant]
  6. PAXIL [Concomitant]

REACTIONS (1)
  - DRUG INTERACTION [None]
